APPROVED DRUG PRODUCT: CARBASTAT
Active Ingredient: CARBACHOL
Strength: 0.01%
Dosage Form/Route: SOLUTION;INTRAOCULAR
Application: A073677 | Product #001
Applicant: NOVARTIS PHARMACEUTICALS CORP
Approved: Apr 28, 1995 | RLD: No | RS: No | Type: DISCN